FAERS Safety Report 8194252-2 (Version None)
Quarter: 2012Q1

REPORT INFORMATION
  Report Type: 
  Country: None (occurrence: None)
  Receive Date: 20120308
  Receipt Date: 20120228
  Transmission Date: 20120608
  Serious: Yes (Hospitalization)
  Sender: FDA-Public Use
  Company Number: FR-ASTRAZENECA-2012SE14942

PATIENT
  Age: 76 Year
  Sex: Male

DRUGS (4)
  1. PLAVIX [Suspect]
     Route: 048
     Dates: start: 20101030, end: 20111209
  2. ATACAND [Suspect]
     Route: 048
     Dates: end: 20111209
  3. PRORACYL [Suspect]
     Route: 048
     Dates: end: 20111214
  4. ASPIRIN [Suspect]
     Route: 048
     Dates: start: 20101030, end: 20111209

REACTIONS (3)
  - LICHENOID KERATOSIS [None]
  - EPIDERMAL NECROSIS [None]
  - CORONARY ARTERY BYPASS [None]
